FAERS Safety Report 11278638 (Version 1)
Quarter: 2015Q3

REPORT INFORMATION
  Report Type: Spontaneous
  Country: CZ (occurrence: None)
  Receive Date: 20150715
  Receipt Date: 20150715
  Transmission Date: 20151125
  Serious: Yes (Death, Hospitalization)
  Sender: FDA-Public Use
  Company Number: CZ-2015VAL000439

PATIENT
  Age: 14 Year
  Sex: Female

DRUGS (2)
  1. PROPAFENONE (PROPAFENONE) [Suspect]
     Active Substance: PROPAFENONE
     Indication: PRODUCT USED FOR UNKNOWN INDICATION
  2. METOPROLOL TARTRATE (METOPROLOL TARTRATE) UNKNOWN [Suspect]
     Active Substance: METOPROLOL TARTRATE
     Indication: PRODUCT USED FOR UNKNOWN INDICATION

REACTIONS (10)
  - Completed suicide [None]
  - Toxicity to various agents [None]
  - Seizure [None]
  - Brain oedema [None]
  - Cardiac arrest [None]
  - Intentional overdose [None]
  - Electrocardiogram QRS complex prolonged [None]
  - Loss of consciousness [None]
  - Acute kidney injury [None]
  - Potentiating drug interaction [None]
